FAERS Safety Report 18902803 (Version 2)
Quarter: 2021Q2

REPORT INFORMATION
  Report Type: Spontaneous
  Country: US (occurrence: US)
  Receive Date: 20210217
  Receipt Date: 20210625
  Transmission Date: 20210717
  Serious: No
  Sender: FDA-Public Use
  Company Number: US-SA-2021SA053366

PATIENT
  Age: 55 Year
  Sex: Female

DRUGS (1)
  1. KEVZARA [Suspect]
     Active Substance: SARILUMAB
     Indication: RHEUMATOID ARTHRITIS
     Dosage: 200 MG
     Route: 058
     Dates: start: 202004

REACTIONS (7)
  - Product dose omission issue [Unknown]
  - Hot flush [Unknown]
  - Therapeutic response decreased [Unknown]
  - Fatigue [Unknown]
  - Hyperhidrosis [Unknown]
  - Epistaxis [Unknown]
  - Product dose omission issue [Unknown]

NARRATIVE: CASE EVENT DATE: 20210202
